FAERS Safety Report 10766849 (Version 4)
Quarter: 2015Q4

REPORT INFORMATION
  Report Type: Spontaneous
  Country: US (occurrence: US)
  Receive Date: 20150205
  Receipt Date: 20151125
  Transmission Date: 20160304
  Serious: Yes (Death, Other)
  Sender: FDA-Public Use
  Company Number: US-PFIZER INC-2015044880

PATIENT
  Age: 55 Year
  Sex: Male
  Weight: 73 kg

DRUGS (7)
  1. SUTENT [Suspect]
     Active Substance: SUNITINIB MALATE
     Indication: METASTATIC RENAL CELL CARCINOMA
     Dosage: 50 MG, ONCE DAILY FOR 28 DAYS AND OFF FOR 14 DAYS)
     Route: 048
     Dates: start: 201410, end: 20141229
  2. MORPHINE [Concomitant]
     Active Substance: MORPHINE
     Indication: PAIN
     Dosage: 60 MG, EVERY TWELVE HOURS AS NEEDED
     Route: 048
     Dates: start: 201403
  3. SUTENT [Suspect]
     Active Substance: SUNITINIB MALATE
     Dosage: 37.5 MG, DAILY
     Dates: start: 20150129, end: 20150916
  4. RIVAROXABAN [Concomitant]
     Active Substance: RIVAROXABAN
     Indication: PERIPHERAL EMBOLISM
     Dosage: 20 MG, 1X/DAY
     Route: 048
     Dates: start: 201409
  5. FERROUS SULFATE [Concomitant]
     Active Substance: FERROUS SULFATE\FERROUS SULFATE, DRIED
     Indication: ANAEMIA
     Dosage: 325 MG, DAILY
     Route: 048
     Dates: start: 201406, end: 201412
  6. SUTENT [Suspect]
     Active Substance: SUNITINIB MALATE
     Dosage: 37.5 MG, DAILY
     Dates: start: 201502
  7. PERCOCET [Concomitant]
     Active Substance: ACETAMINOPHEN\OXYCODONE HYDROCHLORIDE
     Indication: PAIN
     Dosage: UNK, AS NEEDED

REACTIONS (9)
  - Blister [Recovered/Resolved]
  - Pain in extremity [Recovered/Resolved]
  - Palmar-plantar erythrodysaesthesia syndrome [Recovered/Resolved]
  - Abscess [Unknown]
  - Abasia [Recovered/Resolved]
  - Hyperkeratosis [Recovered/Resolved]
  - Disease progression [Fatal]
  - Metastatic renal cell carcinoma [Fatal]
  - Back pain [Not Recovered/Not Resolved]

NARRATIVE: CASE EVENT DATE: 2014
